FAERS Safety Report 10338567 (Version 1)
Quarter: 2014Q3

REPORT INFORMATION
  Report Type: Spontaneous
  Country: TR (occurrence: None)
  Receive Date: 20140721
  Receipt Date: 20140721
  Transmission Date: 20150326
  Serious: Yes (Death, Hospitalization)
  Sender: FDA-Public Use
  Company Number: 2014SUP00020

PATIENT
  Age: 55 Year
  Sex: Female

DRUGS (1)
  1. OXCARBAZEPINE. [Suspect]
     Active Substance: OXCARBAZEPINE
     Indication: EPILEPSY

REACTIONS (5)
  - Histiocytosis haematophagic [None]
  - Neutropenia [None]
  - Septic shock [None]
  - Hepatitis toxic [None]
  - Vanishing bile duct syndrome [None]
